FAERS Safety Report 19716746 (Version 1)
Quarter: 2021Q3

REPORT INFORMATION
  Report Type: Report from Study
  Country: CA (occurrence: US)
  Receive Date: 20210819
  Receipt Date: 20210819
  Transmission Date: 20211014
  Serious: No
  Sender: FDA-Public Use
  Company Number: CA-CELLTRION INC.-2021US009453

PATIENT

DRUGS (1)
  1. TRUXIMA [Suspect]
     Active Substance: RITUXIMAB-ABBS
     Indication: EVANS SYNDROME
     Dosage: TRUXIMA (375 MG/M2) 866 MG IV (BSA 2.31) WEEKLY X 4 WEEKS
     Route: 042

REACTIONS (1)
  - Off label use [Unknown]
